FAERS Safety Report 17969519 (Version 1)
Quarter: 2020Q3

REPORT INFORMATION
  Report Type: Spontaneous
  Country: DE (occurrence: DE)
  Receive Date: 20200701
  Receipt Date: 20200701
  Transmission Date: 20201103
  Serious: Yes (Other)
  Sender: FDA-Public Use
  Company Number: DE-MYLANLABS-2020M1059291

PATIENT
  Sex: Female

DRUGS (3)
  1. ZOLPIDEM [Suspect]
     Active Substance: ZOLPIDEM TARTRATE
     Dosage: 7.5 MG
     Dates: end: 20200608
  2. ZOLPIDEM [Suspect]
     Active Substance: ZOLPIDEM TARTRATE
     Dosage: 5 MG
     Dates: start: 20200609
  3. ZOLPIDEM [Suspect]
     Active Substance: ZOLPIDEM TARTRATE
     Indication: PRODUCT USED FOR UNKNOWN INDICATION
     Dosage: 20 MG, (IN TOTAL WITHIN 24 HOURS (10?5?5) )

REACTIONS (11)
  - Neuralgia [Unknown]
  - Insomnia [Unknown]
  - Asthenia [Unknown]
  - Tremor [Unknown]
  - Malaise [Unknown]
  - Paraesthesia [Unknown]
  - Accidental overdose [Unknown]
  - Respiratory depression [Unknown]
  - Chills [Unknown]
  - Muscle twitching [Unknown]
  - Head discomfort [Unknown]

NARRATIVE: CASE EVENT DATE: 202006
